FAERS Safety Report 8123010-X (Version None)
Quarter: 2012Q1

REPORT INFORMATION
  Report Type: 
  Country: None (occurrence: None)
  Receive Date: 20120208
  Receipt Date: 20120120
  Transmission Date: 20120608
  Serious: Yes (Hospitalization)
  Sender: FDA-Public Use
  Company Number: US-PFIZER INC-K200900800

PATIENT
  Age: 75 Year
  Sex: Female

DRUGS (16)
  1. ATORVASTATIN [Suspect]
     Dosage: 10 MG, 1X/DAY
     Route: 048
  2. STABLON [Suspect]
     Dosage: 37.5 MG, 1X/DAY
     Route: 048
  3. COUMADIN [Suspect]
     Dosage: 4 MG, 1X/DAY
     Route: 048
     Dates: end: 20081106
  4. COUMADIN [Suspect]
     Dosage: 2 MG, 1X/DAY
     Route: 048
     Dates: start: 20081112
  5. LASIX [Suspect]
     Dosage: 60 MG, 1X/DAY
     Route: 048
     Dates: end: 20081105
  6. ZOLPIDEM [Suspect]
     Dosage: 15 MG, 1X/DAY
     Route: 048
  7. POTASSIUM CHLORIDE [Suspect]
     Dosage: 600 MG, 1X/DAY
     Route: 048
     Dates: end: 20081114
  8. SPIRIVA [Suspect]
     Dosage: 18 UG, 1X/DAY
     Route: 055
  9. RAMIPRIL [Suspect]
     Dosage: 10 MG, 1X/DAY
     Route: 048
     Dates: end: 20081106
  10. LASIX [Suspect]
     Dosage: 40 MG, 1X/DAY
     Route: 048
     Dates: start: 20081106
  11. COLCHICINE [Suspect]
     Indication: GOUT
     Dosage: 190.5 MG, 1X/DAY
     Route: 048
     Dates: start: 20081031, end: 20081031
  12. COLCHICINE [Suspect]
     Dosage: 127 MG, 1X/DAY
     Route: 048
     Dates: start: 20081101, end: 20081101
  13. COLCHICINE [Suspect]
     Dosage: 63.5 MG, 1X/DAY
     Route: 048
     Dates: start: 20081102, end: 20081102
  14. RAMIPRIL [Suspect]
     Dosage: 5 MG, 1X/DAY
     Route: 048
     Dates: start: 20081107
  15. BISOPROLOL FUMARATE [Suspect]
     Dosage: 5 MG, 1X/DAY
     Route: 048
  16. PULMICORT-100 [Suspect]
     Dosage: 2 IU, 1X/DAY
     Route: 055

REACTIONS (12)
  - FOOD INTOLERANCE [None]
  - SKIN WRINKLING [None]
  - DIARRHOEA [None]
  - RENAL FAILURE [None]
  - FATIGUE [None]
  - DYSPEPSIA [None]
  - NAUSEA [None]
  - DEHYDRATION [None]
  - GASTROINTESTINAL DISORDER [None]
  - ANTICOAGULATION DRUG LEVEL ABOVE THERAPEUTIC [None]
  - ERUCTATION [None]
  - VOMITING [None]
